FAERS Safety Report 5195152-2 (Version None)
Quarter: 2006Q4

REPORT INFORMATION
  Report Type: 
  Country: None (occurrence: None)
  Receive Date: 20061229
  Receipt Date: 20060315
  Transmission Date: 20070319
  Serious: Yes (Life-Threatening)
  Sender: FDA-Public Use
  Company Number: JP-BOEHRINGER INGELHEIM PHARMACEUTICALS, INC.-2006-BP-02898NB

PATIENT
  Age: 63 Year
  Sex: Female

DRUGS (5)
  1. BI-SIFROL TABLETS [Suspect]
     Indication: PARKINSON'S DISEASE
     Route: 048
     Dates: end: 20060315
  2. MENESIT [Concomitant]
     Indication: PARKINSON'S DISEASE
     Route: 048
  3. ARTANE [Concomitant]
     Indication: PARKINSON'S DISEASE
     Route: 048
  4. SYMMETREL [Concomitant]
     Indication: PARKINSON'S DISEASE
     Route: 048
  5. CONSTAN [Concomitant]
     Indication: PARKINSON'S DISEASE
     Route: 048

REACTIONS (1)
  - SUDDEN ONSET OF SLEEP [None]
